FAERS Safety Report 17553089 (Version 1)
Quarter: 2020Q1

REPORT INFORMATION
  Report Type: Spontaneous
  Country: US (occurrence: US)
  Receive Date: 20200318
  Receipt Date: 20200318
  Transmission Date: 20200409
  Serious: No
  Sender: FDA-Public Use
  Company Number: US-SUN PHARMACEUTICAL INDUSTRIES LTD-2019R1-208962

PATIENT
  Age: 55 Year
  Sex: Female
  Weight: 63.5 kg

DRUGS (4)
  1. IRON [Concomitant]
     Active Substance: IRON
     Indication: COLITIS
     Dosage: 1 DOSAGE FORM, QD
     Route: 048
  2. CLINDAMYCIN. [Suspect]
     Active Substance: CLINDAMYCIN
     Indication: TOOTH DISORDER
     Dosage: 300 MILLIGRAM, TID
     Route: 048
     Dates: start: 20181015, end: 20181018
  3. IRON [Concomitant]
     Active Substance: IRON
     Indication: ANAEMIA
  4. NORTRIPTYLINE [Concomitant]
     Active Substance: NORTRIPTYLINE
     Indication: MIGRAINE
     Dosage: 1 DOSAGE FORM, QD
     Route: 048

REACTIONS (2)
  - Chest discomfort [Recovering/Resolving]
  - Odynophagia [Recovering/Resolving]

NARRATIVE: CASE EVENT DATE: 20181017
